FAERS Safety Report 9076946 (Version 1)
Quarter: 2013Q1

REPORT INFORMATION
  Report Type: Report from Study
  Country: US (occurrence: US)
  Receive Date: 20130129
  Receipt Date: 20130129
  Transmission Date: 20140127
  Serious: No
  Sender: FDA-Public Use
  Company Number: US-ABBOTT-12P-163-0941059-00

PATIENT
  Age: 67 Year
  Sex: Male

DRUGS (7)
  1. HUMIRA 40 MG/ 0.8 ML PRE-FILLED SYRINGE [Suspect]
     Indication: CROHN^S DISEASE
     Dates: start: 20120414
  2. UNKNOWN MEDICATION [Concomitant]
     Indication: HYPERTENSION
  3. LASIX [Concomitant]
     Indication: CARDIAC FAILURE CONGESTIVE
     Route: 058
     Dates: start: 20120414
  4. MORPHINE [Concomitant]
     Indication: PAIN
  5. UNKNOWN MEDICATION [Concomitant]
     Indication: GASTRIC DISORDER
  6. UNKNOWN MEDICATION [Concomitant]
     Indication: PROSTATIC DISORDER
  7. UNKNOWN MEDICATION [Concomitant]
     Indication: DEPRESSION

REACTIONS (2)
  - Blood count abnormal [Not Recovered/Not Resolved]
  - Anaemia [Not Recovered/Not Resolved]
